FAERS Safety Report 6866123-2 (Version None)
Quarter: 2010Q3

REPORT INFORMATION
  Report Type: 
  Country: None (occurrence: None)
  Receive Date: 20100722
  Receipt Date: 20100713
  Transmission Date: 20110219
  Serious: Yes (Other)
  Sender: FDA-Public Use
  Company Number: JP-JNJFOC-20100510452

PATIENT
  Sex: Female
  Weight: 39 kg

DRUGS (21)
  1. DUROTEP MT PATCH [Suspect]
     Indication: OSTEONECROSIS
     Route: 062
  2. DUROTEP MT PATCH [Suspect]
     Route: 062
  3. DUROTEP MT PATCH [Suspect]
     Route: 062
  4. DUROTEP MT PATCH [Suspect]
     Route: 062
  5. DUROTEP MT PATCH [Suspect]
     Route: 062
  6. DUROTEP MT PATCH [Suspect]
     Route: 062
  7. DUROTEP MT PATCH [Suspect]
     Route: 062
  8. DUROTEP MT PATCH [Suspect]
     Route: 062
  9. DUROTEP MT PATCH [Suspect]
     Route: 062
  10. DUROTEP MT PATCH [Suspect]
     Route: 062
  11. FENTANYL [Suspect]
     Indication: OSTEONECROSIS
     Route: 042
  12. PENTAZOCINE LACTATE [Concomitant]
     Indication: OSTEONECROSIS
     Route: 042
  13. SOLANTAL [Concomitant]
     Indication: ANALGESIC THERAPY
     Route: 048
  14. MAGMITT [Concomitant]
     Indication: PROPHYLAXIS
     Route: 048
  15. PRIMPERAN TAB [Concomitant]
     Indication: PROPHYLAXIS
     Route: 048
  16. ZYPREXA [Concomitant]
     Indication: PROPHYLAXIS
     Route: 048
  17. NOVAMIN [Concomitant]
     Indication: PROPHYLAXIS
     Route: 048
  18. LECICARBON [Concomitant]
     Indication: CONSTIPATION
     Route: 054
  19. OPSO [Concomitant]
     Indication: ANALGESIC THERAPY
     Route: 048
  20. MORPHINE HYDROCHLORIDE [Concomitant]
     Indication: ANALGESIC THERAPY
     Route: 048
  21. LAXOBERON [Concomitant]
     Indication: PROPHYLAXIS
     Route: 048

REACTIONS (5)
  - CONSTIPATION [None]
  - EATING DISORDER [None]
  - NAUSEA [None]
  - VOMITING [None]
  - WRONG TECHNIQUE IN DRUG USAGE PROCESS [None]
